FAERS Safety Report 7539023-2 (Version None)
Quarter: 2011Q2

REPORT INFORMATION
  Report Type: 
  Country: None (occurrence: None)
  Receive Date: 20110610
  Receipt Date: 20110531
  Transmission Date: 20111010
  Serious: Yes (Hospitalization, Other)
  Sender: FDA-Public Use
  Company Number: PHHY2011US23810

PATIENT
  Sex: Female
  Weight: 54.81 kg

DRUGS (13)
  1. VITAMIN B [Concomitant]
  2. CALCIUM CARBONATE [Concomitant]
  3. HYDREA [Concomitant]
  4. PREDNISONE [Concomitant]
  5. MIRALAX [Concomitant]
  6. LEVAQUIN [Concomitant]
  7. EXJADE [Suspect]
     Indication: SICKLE CELL ANAEMIA
     Dosage: 1500 MG, DAILY
     Route: 048
     Dates: start: 20080201
  8. KEPPRA [Concomitant]
  9. TRILEPTAL [Concomitant]
  10. ATIVAN [Concomitant]
  11. PRILOSEC [Concomitant]
  12. ZONEGRAN [Concomitant]
  13. ASCORBIC ACID [Concomitant]

REACTIONS (4)
  - LIMB DISCOMFORT [None]
  - BACK PAIN [None]
  - PAIN [None]
  - PAIN IN EXTREMITY [None]
